FAERS Safety Report 25708396 (Version 1)
Quarter: 2025Q3

REPORT INFORMATION
  Report Type: Spontaneous
  Country: US (occurrence: US)
  Receive Date: 20250821
  Receipt Date: 20250821
  Transmission Date: 20251020
  Serious: Yes (Other)
  Sender: SHILPA MEDICARE
  Company Number: US-KOANAAP-SML-US-2025-00389

PATIENT

DRUGS (2)
  1. AZACITIDINE [Suspect]
     Active Substance: AZACITIDINE
     Indication: Acute myeloid leukaemia
     Dosage: PATIENT RECEIVED ORAL AZACITIDINE (AZ) AT 300 MG DAILY ON DAYS 1-14 OF A 28-DAY CYCLE.
     Route: 048
  2. AZACITIDINE [Suspect]
     Active Substance: AZACITIDINE
     Dosage: PATIENT REQUIRED DOSE REDUCTION TO 200 MG DAILY ON DAYS 1-14 DUE TO CYTOPENIAS
     Route: 048

REACTIONS (2)
  - Cytopenia [Unknown]
  - Off label use [Unknown]
